FAERS Safety Report 9426242 (Version 2)
Quarter: 2013Q3

REPORT INFORMATION
  Report Type: Report from Study
  Country: CA (occurrence: CA)
  Receive Date: 20130730
  Receipt Date: 20130910
  Transmission Date: 20140515
  Serious: Yes (Hospitalization, Other)
  Sender: FDA-Public Use
  Company Number: CA-ROCHE-1252765

PATIENT
  Age: 63 Year
  Sex: Female

DRUGS (13)
  1. PEGASYS [Suspect]
     Indication: HEPATITIS C
     Route: 058
     Dates: start: 20130625
  2. COPEGUS [Suspect]
     Indication: HEPATITIS C
     Dosage: 42 TABLETS/WEEK
     Route: 048
     Dates: start: 20130625
  3. VICTRELIS [Suspect]
     Indication: CHRONIC HEPATITIS C
     Route: 048
  4. QUETIAPINE [Concomitant]
     Route: 065
  5. RISEDRONATE [Concomitant]
     Route: 065
  6. JANUVIA [Concomitant]
     Route: 065
  7. VALSARTAN [Concomitant]
     Route: 065
  8. HYDROCHLOROTHIAZIDE [Concomitant]
     Route: 065
  9. PANTOPRAZOLE [Concomitant]
     Route: 065
  10. GLICLAZIDE [Concomitant]
     Route: 065
  11. FERROUS GLUCONATE [Concomitant]
     Route: 065
  12. CITALOPRAM [Concomitant]
     Route: 065
  13. LORAZEPAM [Concomitant]
     Route: 065

REACTIONS (3)
  - Platelet count decreased [Unknown]
  - Pyrexia [Unknown]
  - Visual impairment [Unknown]
